FAERS Safety Report 9605943 (Version 1)
Quarter: 2013Q4

REPORT INFORMATION
  Report Type: Spontaneous
  Country: AU (occurrence: AU)
  Receive Date: 20131008
  Receipt Date: 20131008
  Transmission Date: 20140711
  Serious: Yes (Other)
  Sender: FDA-Public Use
  Company Number: PHHY2013AU110988

PATIENT
  Age: 11 Year
  Sex: Female

DRUGS (5)
  1. VINCRISTINE [Suspect]
     Indication: T-CELL TYPE ACUTE LEUKAEMIA
  2. METHOTREXATE [Suspect]
     Indication: T-CELL TYPE ACUTE LEUKAEMIA
     Route: 037
  3. DOXORUBICIN [Suspect]
     Indication: T-CELL TYPE ACUTE LEUKAEMIA
  4. DEXAMETHASONE [Suspect]
     Indication: T-CELL TYPE ACUTE LEUKAEMIA
  5. PEGASPARGASE [Suspect]
     Indication: T-CELL TYPE ACUTE LEUKAEMIA

REACTIONS (3)
  - Zygomycosis [Recovered/Resolved]
  - Abdominal pain [Recovered/Resolved]
  - Neutropenia [Recovered/Resolved]
